FAERS Safety Report 4430567-9 (Version None)
Quarter: 2004Q3

REPORT INFORMATION
  Report Type: 
  Country: None (occurrence: None)
  Receive Date: 20040818
  Receipt Date: 20040803
  Transmission Date: 20050211
  Serious: Yes (Hospitalization)
  Sender: FDA-Public Use
  Company Number: 238423

PATIENT
  Sex: Female

DRUGS (1)
  1. MIXTARD HUMAN 70/30 [Suspect]
     Indication: ILL-DEFINED DISORDER

REACTIONS (1)
  - GASTROINTESTINAL DISORDER [None]
